FAERS Safety Report 18205617 (Version 1)
Quarter: 2020Q3

REPORT INFORMATION
  Report Type: Spontaneous
  Country: FR (occurrence: FR)
  Receive Date: 20200828
  Receipt Date: 20200828
  Transmission Date: 20201103
  Serious: Yes (Hospitalization)
  Sender: FDA-Public Use
  Company Number: FR-TEVA-2020-FR-1821390

PATIENT
  Age: 69 Year
  Sex: Male

DRUGS (2)
  1. SERTRALINE [Suspect]
     Active Substance: SERTRALINE HYDROCHLORIDE
     Indication: OBSESSIVE-COMPULSIVE DISORDER
     Route: 065
  2. OLANZAPINE. [Suspect]
     Active Substance: OLANZAPINE
     Indication: OBSESSIVE-COMPULSIVE DISORDER
     Route: 065

REACTIONS (9)
  - Reduced facial expression [Unknown]
  - Irritability [Unknown]
  - Dyskinesia [Unknown]
  - Gait disturbance [Unknown]
  - Suicidal ideation [Unknown]
  - Hallucination, visual [Unknown]
  - Drug hypersensitivity [Unknown]
  - Fall [Unknown]
  - Extrapyramidal disorder [Unknown]
